FAERS Safety Report 5987243-0 (Version None)
Quarter: 2008Q4

REPORT INFORMATION
  Report Type: 
  Country: None (occurrence: None)
  Receive Date: 20081209
  Receipt Date: 20081201
  Transmission Date: 20090506
  Serious: Yes (Other)
  Sender: FDA-Public Use
  Company Number: US-AMGEN-US321577

PATIENT
  Sex: Male

DRUGS (4)
  1. EPOGEN [Suspect]
     Indication: DIALYSIS
     Route: 042
     Dates: start: 19990101, end: 19990101
  2. RAPAMUNE [Concomitant]
     Route: 065
  3. PREDNISONE TAB [Concomitant]
     Route: 065
  4. TESTOSTERONE [Concomitant]

REACTIONS (5)
  - ANKLE FRACTURE [None]
  - BLOOD TESTOSTERONE DECREASED [None]
  - HAEMOGLOBIN DECREASED [None]
  - IMPAIRED HEALING [None]
  - TRANSPLANT FAILURE [None]
